FAERS Safety Report 22250712 (Version 1)
Quarter: 2023Q2

REPORT INFORMATION
  Report Type: Spontaneous
  Country: US (occurrence: None)
  Receive Date: 20230424
  Receipt Date: 20230424
  Transmission Date: 20230722
  Serious: Yes (Life-Threatening, Hospitalization)
  Sender: FDA-Public Use
  Company Number: None

PATIENT
  Age: 81 Year
  Sex: Male
  Weight: 95.5 kg

DRUGS (2)
  1. LEXISCAN [Suspect]
     Active Substance: REGADENOSON
     Indication: Cardiac stress test
     Dosage: FREQUENCY : AS NEEDED;?
     Dates: start: 20230421
  2. GADOTERIDOL [Concomitant]
     Active Substance: GADOTERIDOL
     Dates: start: 20230421

REACTIONS (3)
  - Bradycardia [None]
  - Cardiac arrest [None]
  - Rash [None]

NARRATIVE: CASE EVENT DATE: 20230421
